FAERS Safety Report 6936479-0 (Version None)
Quarter: 2010Q3

REPORT INFORMATION
  Report Type: 
  Country: None (occurrence: None)
  Receive Date: 20100823
  Receipt Date: 20100819
  Transmission Date: 20110219
  Serious: Yes (Other)
  Sender: FDA-Public Use
  Company Number: CN-ROCHE-694647

PATIENT
  Age: 53 Year
  Sex: Female

DRUGS (3)
  1. PEGINTERFERON ALFA-2A [Suspect]
     Indication: HEPATITIS C
     Dosage: STRENGTH REPORTED AS 180 UG.
     Route: 058
     Dates: start: 20091015, end: 20100305
  2. PEGINTERFERON ALFA-2A [Suspect]
     Dosage: STRENGTH REPORTED AS 135 UG.
     Route: 058
     Dates: start: 20100305
  3. RIBAVIRIN [Concomitant]
     Indication: HEPATITIS C
     Route: 048
     Dates: start: 20091015

REACTIONS (4)
  - HAEMANGIOMA OF LIVER [None]
  - NEUTROPHIL COUNT DECREASED [None]
  - PLATELET COUNT DECREASED [None]
  - WHITE BLOOD CELL COUNT DECREASED [None]
